FAERS Safety Report 21060888 (Version 3)
Quarter: 2022Q3

REPORT INFORMATION
  Report Type: Spontaneous
  Country: US (occurrence: US)
  Receive Date: 20220709
  Receipt Date: 20220812
  Transmission Date: 20221026
  Serious: Yes (Other)
  Sender: FDA-Public Use
  Company Number: US-NOVARTISTESTPH-NVSC2022US155146

PATIENT
  Age: 64 Year
  Sex: Female

DRUGS (4)
  1. BEOVU [Suspect]
     Active Substance: BROLUCIZUMAB-DBLL
     Indication: Neovascular age-related macular degeneration
     Dosage: 0.05 ML (6 MG)
     Route: 031
     Dates: start: 20220107
  2. BEOVU [Suspect]
     Active Substance: BROLUCIZUMAB-DBLL
     Dosage: 0.05 ML
     Route: 065
     Dates: start: 20220211
  3. BEOVU [Suspect]
     Active Substance: BROLUCIZUMAB-DBLL
     Dosage: 0.05 ML
     Route: 065
     Dates: start: 20220318
  4. BEOVU [Suspect]
     Active Substance: BROLUCIZUMAB-DBLL
     Dosage: 0.05 ML
     Route: 065
     Dates: start: 20220429

REACTIONS (11)
  - Uveitis [Recovered/Resolved]
  - Vitreous haze [Unknown]
  - Vitreous detachment [Unknown]
  - Eye inflammation [Recovered/Resolved]
  - White blood cell agglutination present [Unknown]
  - Retinal vasculitis [Recovered/Resolved]
  - Ocular hyperaemia [Unknown]
  - Retinal haemorrhage [Unknown]
  - Vitreous haemorrhage [Unknown]
  - Retinal tear [Unknown]
  - Visual acuity reduced [Unknown]

NARRATIVE: CASE EVENT DATE: 20220501
